FAERS Safety Report 10648402 (Version 2)
Quarter: 2015Q1

REPORT INFORMATION
  Report Type: Spontaneous
  Country: US (occurrence: US)
  Receive Date: 20141212
  Receipt Date: 20150114
  Transmission Date: 20150720
  Serious: Yes (Hospitalization, Other)
  Sender: FDA-Public Use
  Company Number: US-JNJFOC-20141207261

PATIENT
  Age: 65 Year
  Sex: Male

DRUGS (11)
  1. IMBRUVICA [Suspect]
     Active Substance: IBRUTINIB
     Indication: WALDENSTROM^S MACROGLOBULINAEMIA
     Route: 048
     Dates: start: 20141107, end: 20141129
  2. LEVOTHYROXINE [Concomitant]
     Active Substance: LEVOTHYROXINE
     Indication: HYPOTHYROIDISM
     Route: 048
     Dates: start: 20141130
  3. LUNESTA [Concomitant]
     Active Substance: ESZOPICLONE
  4. OMEPRAZOLE. [Concomitant]
     Active Substance: OMEPRAZOLE
  5. TESTOSTERONE. [Concomitant]
     Active Substance: TESTOSTERONE
  6. PRAMIPEXOLE [Concomitant]
     Active Substance: PRAMIPEXOLE
  7. LEVOTHYROXINE [Concomitant]
     Active Substance: LEVOTHYROXINE
     Indication: HYPOTHYROIDISM
     Route: 048
     Dates: start: 20141130
  8. DEXILANT [Concomitant]
     Active Substance: DEXLANSOPRAZOLE
  9. LEVOTHYROXINE [Concomitant]
     Active Substance: LEVOTHYROXINE
     Indication: HYPOTHYROIDISM
     Route: 048
     Dates: start: 20141117, end: 20141129
  10. PREDNISONE. [Concomitant]
     Active Substance: PREDNISONE
  11. ALENDRONATE [Concomitant]
     Active Substance: ALENDRONATE SODIUM

REACTIONS (9)
  - Pericardial effusion [Recovered/Resolved]
  - Pleural effusion [Not Recovered/Not Resolved]
  - Oropharyngeal pain [Unknown]
  - Confusional state [Unknown]
  - Atrial fibrillation [Recovered/Resolved]
  - Cardiac failure congestive [Recovering/Resolving]
  - Cardiomegaly [Unknown]
  - Balance disorder [Unknown]
  - Anaemia [Unknown]

NARRATIVE: CASE EVENT DATE: 20141129
